FAERS Safety Report 19084763 (Version 1)
Quarter: 2021Q2

REPORT INFORMATION
  Report Type: Spontaneous
  Country: NL (occurrence: NL)
  Receive Date: 20210401
  Receipt Date: 20210401
  Transmission Date: 20210717
  Serious: Yes (Congenital Anomaly, Other)
  Sender: FDA-Public Use
  Company Number: NL-SA-2021SA107221

PATIENT

DRUGS (2)
  1. LEVOCETIRIZINE [Suspect]
     Active Substance: LEVOCETIRIZINE
     Indication: SYSTEMIC MASTOCYTOSIS
     Dosage: UNK
     Route: 064
     Dates: start: 201205
  2. CALCIUM CARBONATE/COLECALCIFEROL [Suspect]
     Active Substance: CALCIUM CARBONATE\CHOLECALCIFEROL
     Indication: SYSTEMIC MASTOCYTOSIS
     Dosage: 1 DF, QD
     Route: 064
     Dates: start: 201205

REACTIONS (2)
  - Foetal exposure during pregnancy [Unknown]
  - Femur-fibula-ulna complex [Not Recovered/Not Resolved]

NARRATIVE: CASE EVENT DATE: 20210307
